FAERS Safety Report 9665271 (Version 2)
Quarter: 2014Q1

REPORT INFORMATION
  Report Type: Spontaneous
  Country: US (occurrence: US)
  Receive Date: 20131101
  Receipt Date: 20140123
  Transmission Date: 20141002
  Serious: Yes (Other)
  Sender: FDA-Public Use
  Company Number: US-PFIZER INC-2013311877

PATIENT
  Age: 59 Year
  Sex: Male
  Weight: 99.77 kg

DRUGS (3)
  1. XELJANZ [Suspect]
     Indication: RHEUMATOID ARTHRITIS
     Dosage: 5MG (1 TABLET) TWICE DAILY
     Route: 048
     Dates: start: 20130822
  2. XELJANZ [Suspect]
     Dosage: 5 MG, 3X/DAY
     Route: 048
     Dates: end: 201312
  3. IMURAN [Concomitant]
     Indication: RHEUMATOID ARTHRITIS
     Dosage: 50 MG, 4X/DAY

REACTIONS (4)
  - Rheumatoid arthritis [Unknown]
  - Energy increased [Unknown]
  - Therapeutic response unexpected [Unknown]
  - Arthralgia [Unknown]
